FAERS Safety Report 11882770 (Version 6)
Quarter: 2016Q3

REPORT INFORMATION
  Report Type: Report from Study
  Country: US (occurrence: US)
  Receive Date: 20151231
  Receipt Date: 20160718
  Transmission Date: 20161109
  Serious: Yes (Hospitalization)
  Sender: FDA-Public Use
  Company Number: US-SA-2015SA221073

PATIENT
  Age: 48 Year
  Sex: Male

DRUGS (1)
  1. LEMTRADA [Suspect]
     Active Substance: ALEMTUZUMAB
     Indication: MULTIPLE SCLEROSIS
     Route: 041
     Dates: start: 20151207, end: 20151211

REACTIONS (10)
  - Wound [Not Recovered/Not Resolved]
  - Dysarthria [Not Recovered/Not Resolved]
  - Dyspnoea [Not Recovered/Not Resolved]
  - Wound infection [Not Recovered/Not Resolved]
  - Fatigue [Unknown]
  - Staphylococcal infection [Not Recovered/Not Resolved]
  - Hospitalisation [Recovered/Resolved]
  - Hypersensitivity [Not Recovered/Not Resolved]
  - Memory impairment [Not Recovered/Not Resolved]
  - Ill-defined disorder [Unknown]

NARRATIVE: CASE EVENT DATE: 2015
